FAERS Safety Report 6384973-6 (Version None)
Quarter: 2009Q4

REPORT INFORMATION
  Report Type: 
  Country: None (occurrence: None)
  Receive Date: 20091002
  Receipt Date: 20090928
  Transmission Date: 20100525
  Serious: Yes (Other)
  Sender: FDA-Public Use
  Company Number: DK-TYCO HEALTHCARE/MALLINCKRODT-T200901802

PATIENT

DRUGS (1)
  1. OPTIRAY 350 [Suspect]
     Indication: SCAN WITH CONTRAST
     Dosage: UNK
     Route: 042
     Dates: start: 20090806, end: 20090806

REACTIONS (2)
  - ANGIOEDEMA [None]
  - URTICARIA [None]
